FAERS Safety Report 13660421 (Version 2)
Quarter: 2023Q2

REPORT INFORMATION
  Report Type: Spontaneous
  Country: CA (occurrence: CA)
  Receive Date: 20170616
  Receipt Date: 20230421
  Transmission Date: 20230721
  Serious: Yes (Hospitalization)
  Sender: FDA-Public Use
  Company Number: CA-TEVA-778182ACC

PATIENT
  Age: 63 Year
  Sex: Female

DRUGS (2)
  1. PROPOFOL [Suspect]
     Active Substance: PROPOFOL
     Indication: Colonoscopy
     Route: 042
  2. PROPOFOL [Suspect]
     Active Substance: PROPOFOL
     Route: 042

REACTIONS (6)
  - Asthenia [Unknown]
  - Blood test abnormal [Unknown]
  - Chromaturia [Unknown]
  - Decreased appetite [Unknown]
  - Hepatitis [Unknown]
  - Nausea [Unknown]
